FAERS Safety Report 24861393 (Version 1)
Quarter: 2025Q1

REPORT INFORMATION
  Report Type: Spontaneous
  Country: US (occurrence: US)
  Receive Date: 20250120
  Receipt Date: 20250120
  Transmission Date: 20250409
  Serious: Yes (Death, Other)
  Sender: SPECGX
  Company Number: US-SPECGX-T202500321

PATIENT
  Age: 66 Year
  Sex: Male

DRUGS (1)
  1. BUPRENORPHINE\NALOXONE [Suspect]
     Active Substance: BUPRENORPHINE\NALOXONE
     Indication: Product used for unknown indication
     Route: 065

REACTIONS (5)
  - Toxicity to various agents [Fatal]
  - Endotracheal intubation [Unknown]
  - Coma [Unknown]
  - Depressed level of consciousness [Unknown]
  - Respiratory depression [Unknown]
